FAERS Safety Report 7906581-5 (Version None)
Quarter: 2011Q4

REPORT INFORMATION
  Report Type: 
  Country: None (occurrence: None)
  Receive Date: 20111109
  Receipt Date: 20111109
  Transmission Date: 20120403
  Serious: Yes (Other)
  Sender: FDA-Public Use
  Company Number: None

PATIENT
  Age: 75 Year
  Sex: Male

DRUGS (1)
  1. TRIAMTERENE AND HYDROCHLOROTHIAZIDE [Suspect]
     Dosage: TAKE 1 TABLET DAILY
     Dates: start: 20110706

REACTIONS (2)
  - PULMONARY OEDEMA [None]
  - HEART RATE IRREGULAR [None]
